FAERS Safety Report 11890132 (Version 1)
Quarter: 2016Q1

REPORT INFORMATION
  Report Type: Spontaneous
  Country: PL (occurrence: PL)
  Receive Date: 20160105
  Receipt Date: 20160105
  Transmission Date: 20160526
  Serious: Yes (Other)
  Sender: FDA-Public Use
  Company Number: PHHY2015PL168698

PATIENT
  Age: 60 Year
  Sex: Female
  Weight: 69 kg

DRUGS (1)
  1. METHOTREXATE [Suspect]
     Active Substance: METHOTREXATE
     Indication: RHEUMATOID ARTHRITIS
     Dosage: 15 MG, QW
     Route: 048
     Dates: start: 2010

REACTIONS (3)
  - Alopecia [Unknown]
  - Iritis [Unknown]
  - Glaucoma [Unknown]

NARRATIVE: CASE EVENT DATE: 2012
